FAERS Safety Report 24043977 (Version 2)
Quarter: 2025Q2

REPORT INFORMATION
  Report Type: Report from Study
  Country: ES (occurrence: ES)
  Receive Date: 20240703
  Receipt Date: 20250616
  Transmission Date: 20250717
  Serious: No
  Sender: ABBVIE
  Company Number: ES-ABBVIE-5823602

PATIENT
  Age: 68 Year
  Sex: Female

DRUGS (29)
  1. RISANKIZUMAB [Suspect]
     Active Substance: RISANKIZUMAB
     Indication: Psoriasis
     Route: 058
     Dates: start: 20211110, end: 20211230
  2. RISANKIZUMAB [Suspect]
     Active Substance: RISANKIZUMAB
     Route: 058
     Dates: start: 20211230
  3. DICLOFENAC [Concomitant]
     Active Substance: DICLOFENAC
     Indication: Neck pain
     Route: 048
     Dates: start: 20221213, end: 20221219
  4. Ascorbic acid;Codeine;Paracetamol [Concomitant]
     Indication: Nasopharyngitis
     Route: 048
     Dates: start: 20221219, end: 20221225
  5. ACETAMINOPHEN [Concomitant]
     Active Substance: ACETAMINOPHEN
     Indication: Back pain
     Route: 048
     Dates: start: 20230201, end: 20230203
  6. ACETAMINOPHEN [Concomitant]
     Active Substance: ACETAMINOPHEN
     Indication: Back pain
     Route: 048
     Dates: start: 20230516, end: 20230520
  7. ACETAMINOPHEN [Concomitant]
     Active Substance: ACETAMINOPHEN
     Indication: Back pain
     Route: 048
     Dates: start: 20230811
  8. ACETAMINOPHEN [Concomitant]
     Active Substance: ACETAMINOPHEN
     Indication: Back pain
     Route: 048
     Dates: start: 20230609, end: 20230614
  9. OMEPRAZOLE [Concomitant]
     Active Substance: OMEPRAZOLE
     Indication: Gastrointestinal disorder prophylaxis
     Route: 048
     Dates: start: 20170601
  10. PITAVASTATIN [Concomitant]
     Active Substance: PITAVASTATIN
     Indication: Hypercholesterolaemia
     Route: 048
     Dates: start: 20170601
  11. DEXKETOPROFEN [Concomitant]
     Active Substance: DEXKETOPROFEN
     Indication: Neck pain
     Route: 048
     Dates: start: 20221026, end: 20221101
  12. DEXKETOPROFEN [Concomitant]
     Active Substance: DEXKETOPROFEN
     Indication: Neck pain
     Route: 048
     Dates: start: 20230427, end: 20230506
  13. DEXKETOPROFEN [Concomitant]
     Active Substance: DEXKETOPROFEN
     Indication: Neck pain
     Route: 048
     Dates: start: 20230201, end: 20230203
  14. DEXKETOPROFEN [Concomitant]
     Active Substance: DEXKETOPROFEN
     Indication: Neck pain
     Route: 048
     Dates: start: 20221026, end: 20221101
  15. DEXKETOPROFEN [Concomitant]
     Active Substance: DEXKETOPROFEN
     Indication: Neck pain
     Route: 048
     Dates: start: 20231213, end: 20231217
  16. DEXKETOPROFEN [Concomitant]
     Active Substance: DEXKETOPROFEN
     Indication: Neck pain
     Route: 030
     Dates: start: 20240928, end: 20240928
  17. NAPROXEN [Concomitant]
     Active Substance: NAPROXEN
     Indication: Nasopharyngitis
     Route: 048
     Dates: start: 20230427, end: 20230506
  18. BETAHISTINE [Concomitant]
     Active Substance: BETAHISTINE
     Indication: Vertigo
     Route: 048
     Dates: start: 20230517, end: 20230521
  19. FOSFOMYCIN [Concomitant]
     Active Substance: FOSFOMYCIN
     Indication: Urinary tract infection
     Route: 048
     Dates: start: 20230805, end: 20230807
  20. FOSFOMYCIN [Concomitant]
     Active Substance: FOSFOMYCIN
     Indication: Urinary tract infection
     Route: 048
     Dates: start: 20230523, end: 20230524
  21. Fusidato de sodio [Concomitant]
     Indication: Actinic keratosis
     Route: 061
     Dates: start: 20220920, end: 20220930
  22. IBUPROFEN [Concomitant]
     Active Substance: IBUPROFEN
     Indication: Urinary tract infection
     Route: 048
     Dates: start: 20230805, end: 20230809
  23. METAMIZOLE [Concomitant]
     Active Substance: METAMIZOLE
     Indication: Abdominal pain
     Route: 048
     Dates: start: 20230811
  24. DIAZEPAM [Concomitant]
     Active Substance: DIAZEPAM
     Indication: Neck pain
     Dosage: FREQUENCY:  EVERY DAY AT BEDTIME
     Route: 048
     Dates: start: 20231213, end: 20231215
  25. HYALURONATE SODIUM\TREHALOSE [Concomitant]
     Active Substance: HYALURONATE SODIUM\TREHALOSE
     Indication: Eye disorder
     Route: 047
     Dates: start: 20240206
  26. PENTOSAN POLYSULFATE SODIUM [Concomitant]
     Active Substance: PENTOSAN POLYSULFATE SODIUM
     Indication: Haematoma
     Route: 061
     Dates: start: 20240206, end: 20240206
  27. FUSIDATE SODIUM [Concomitant]
     Active Substance: FUSIDATE SODIUM
     Indication: Actinic keratosis
     Dosage: DOSAGE: 20 MG/G
     Route: 061
     Dates: start: 20240620, end: 20240624
  28. ERYTHROMYCIN [Concomitant]
     Active Substance: ERYTHROMYCIN
     Indication: Ocular hyperaemia
     Route: 061
     Dates: start: 20240626, end: 20240702
  29. ACETYLCYSTEINE [Concomitant]
     Active Substance: ACETYLCYSTEINE
     Indication: Nasopharyngitis
     Dates: start: 20241002, end: 20241009

REACTIONS (1)
  - Dental implantation [Recovered/Resolved]

NARRATIVE: CASE EVENT DATE: 20230418
